FAERS Safety Report 9526701 (Version 2)
Quarter: 2013Q3

REPORT INFORMATION
  Report Type: Spontaneous
  Country: US (occurrence: US)
  Receive Date: 20130916
  Receipt Date: 20130916
  Transmission Date: 20140515
  Serious: No
  Sender: FDA-Public Use
  Company Number: US-PURDUE-USA-2012-0086726

PATIENT
  Age: 54 Year
  Sex: Female
  Weight: 52.61 kg

DRUGS (6)
  1. INTERMEZZO [Suspect]
     Indication: INSOMNIA
     Dosage: 1.75 MG, UNK
     Dates: start: 20120520, end: 20120520
  2. CYMBALTA [Concomitant]
     Indication: DEPRESSION
     Dosage: 60 MG, DAILY
     Dates: start: 20080916
  3. JANUVIA [Concomitant]
     Indication: TYPE 2 DIABETES MELLITUS
     Dosage: 100 MG, DAILY
     Dates: start: 2011
  4. PRAVASTAN [Concomitant]
     Indication: DYSLIPIDAEMIA
     Dosage: 20 MG, HS
     Dates: start: 20101008
  5. METFORMIN [Concomitant]
     Indication: TYPE 2 DIABETES MELLITUS
     Dosage: 1000 MG, BID
     Dates: start: 20090608
  6. GLIPIZIDE ER [Concomitant]
     Indication: TYPE 2 DIABETES MELLITUS
     Dosage: 10 MG, DAILY
     Dates: start: 20090608

REACTIONS (1)
  - Drug ineffective [Recovered/Resolved]
